FAERS Safety Report 4263751-8 (Version None)
Quarter: 2004Q1

REPORT INFORMATION
  Report Type: 
  Country: None (occurrence: None)
  Receive Date: 20040102
  Receipt Date: 20031218
  Transmission Date: 20041129
  Serious: Yes (Hospitalization, Other)
  Sender: FDA-Public Use
  Company Number: CA_031106396

PATIENT
  Sex: Female

DRUGS (4)
  1. GLUCAGON [Suspect]
  2. HUMALOG [Suspect]
     Indication: DIABETES MELLITUS
  3. HUMULIN N [Suspect]
     Indication: DIABETES MELLITUS
  4. HUMULIN R [Suspect]
     Indication: DIABETES MELLITUS

REACTIONS (2)
  - COMA [None]
  - PHARMACEUTICAL PRODUCT COMPLAINT [None]
